FAERS Safety Report 7133322-4 (Version None)
Quarter: 2010Q4

REPORT INFORMATION
  Report Type: 
  Country: None (occurrence: None)
  Receive Date: 20101117
  Receipt Date: 20101102
  Transmission Date: 20110411
  Serious: Yes (Other)
  Sender: FDA-Public Use
  Company Number: AUR-APL-2010-02711

PATIENT
  Sex: Female

DRUGS (1)
  1. VENLAFAXINE [Suspect]

REACTIONS (5)
  - ABNORMAL BEHAVIOUR [None]
  - ECONOMIC PROBLEM [None]
  - IMPAIRED WORK ABILITY [None]
  - MENTAL IMPAIRMENT [None]
  - PRODUCT SUBSTITUTION ISSUE [None]
